FAERS Safety Report 9015377 (Version 1)
Quarter: 2013Q1

REPORT INFORMATION
  Report Type: Spontaneous
  Country: US (occurrence: US)
  Receive Date: 20130116
  Receipt Date: 20130116
  Transmission Date: 20140127
  Serious: Yes (Hospitalization, Other)
  Sender: FDA-Public Use
  Company Number: US-BAYER-2013-003427

PATIENT
  Age: 24 Year
  Sex: Female
  Weight: 69.3 kg

DRUGS (17)
  1. YAZ [Suspect]
  2. YASMIN [Suspect]
  3. ALPRAZOLAM [Concomitant]
     Dosage: 0.25 MG, UNK
  4. HYDROXYZINE PAMOATE [Concomitant]
     Dosage: 25 MG, TID
  5. VITAMIN D NOS [Concomitant]
     Dosage: 5,000 UNITS QD
  6. NAPROXEN [Concomitant]
     Indication: COSTOCHONDRITIS
     Dosage: 500 MG, Q 12 H
     Route: 048
  7. PERCOCET [Concomitant]
     Indication: PAIN
     Dosage: 5/325 Q 4-6 H PRN
  8. ACETAMINOPHEN W/OXYCODONE [Concomitant]
  9. SERTRALINE HYDROCHLORIDE [Concomitant]
     Dosage: 50 MG, UNK
  10. GABAPENTIN [Concomitant]
     Dosage: 300 MG, UNK
  11. ZOLOFT [Concomitant]
     Indication: ANXIETY
     Dosage: 50 MG, QD
     Route: 048
  12. ZOLOFT [Concomitant]
     Indication: DEPRESSION
  13. XANAX [Concomitant]
     Indication: ANXIETY
     Dosage: 0.25 MG, Q 8 H PRN
  14. XANAX [Concomitant]
     Indication: DEPRESSION
  15. NAPROSYN [Concomitant]
     Indication: CHEST PAIN
  16. MORPHINE [Concomitant]
     Indication: PAIN
  17. VICODIN [Concomitant]

REACTIONS (2)
  - Pulmonary embolism [Recovered/Resolved]
  - Cholelithiasis [None]
